FAERS Safety Report 14738533 (Version 2)
Quarter: 2018Q2

REPORT INFORMATION
  Report Type: Spontaneous
  Country: GB (occurrence: GB)
  Receive Date: 20180409
  Receipt Date: 20180417
  Transmission Date: 20180711
  Serious: Yes (Hospitalization, Congenital Anomaly, Other)
  Sender: FDA-Public Use
  Company Number: GB-ABBVIE-18P-167-2298905-00

PATIENT
  Sex: Male

DRUGS (1)
  1. SODIUM VALPROATE [Suspect]
     Active Substance: VALPROATE SODIUM
     Indication: MATERNAL EXPOSURE TIMING UNSPECIFIED
     Route: 064

REACTIONS (13)
  - Speech disorder developmental [Unknown]
  - Mobility decreased [Unknown]
  - Foetal exposure during pregnancy [Unknown]
  - Memory impairment [Unknown]
  - Dysmorphism [Unknown]
  - Coordination abnormal [Unknown]
  - Astigmatism [Unknown]
  - Deafness [Unknown]
  - Foetal anticonvulsant syndrome [Unknown]
  - Psychiatric symptom [Unknown]
  - Social problem [Unknown]
  - Myopia [Unknown]
  - Congenital inguinal hernia [Unknown]
